FAERS Safety Report 16132863 (Version 2)
Quarter: 2019Q2

REPORT INFORMATION
  Report Type: Report from Study
  Country: US (occurrence: US)
  Receive Date: 20190329
  Receipt Date: 20190611
  Transmission Date: 20190711
  Serious: Yes (Other)
  Sender: FDA-Public Use
  Company Number: US-SA-2019SA078566

PATIENT
  Age: 81 Year
  Sex: Female

DRUGS (19)
  1. INSULIN GLARGINE [Suspect]
     Active Substance: INSULIN GLARGINE
     Indication: TYPE 2 DIABETES MELLITUS
     Dosage: 10 U, HS
     Route: 058
  2. METOPROLOL TARTRATE. [Concomitant]
     Active Substance: METOPROLOL TARTRATE
     Dosage: 50 MG
  3. NIACIN. [Concomitant]
     Active Substance: NIACIN
     Dosage: 500 MG
  4. HUMALOG [Concomitant]
     Active Substance: INSULIN LISPRO
     Dosage: 30 TO 40 UNITS, QD
  5. FISH OIL OMEGA 3 [Concomitant]
     Active Substance: FISH OIL
  6. FOLIC ACID. [Concomitant]
     Active Substance: FOLIC ACID
  7. BACLOFEN. [Concomitant]
     Active Substance: BACLOFEN
  8. REPATHA [Concomitant]
     Active Substance: EVOLOCUMAB
  9. AMLODIPINE BESYLATE. [Concomitant]
     Active Substance: AMLODIPINE BESYLATE
     Dosage: 10 MG
  10. CLOPIDOGREL BISULFATE. [Concomitant]
     Active Substance: CLOPIDOGREL BISULFATE
     Dosage: UNK
  11. LEVOTHYROXINE SODIUM. [Concomitant]
     Active Substance: LEVOTHYROXINE SODIUM
     Dosage: 25 MG
  12. GLIPIZIDE XL [Concomitant]
     Active Substance: GLIPIZIDE
     Dosage: 2.5 MG
  13. CITALOPRAM [Concomitant]
     Active Substance: CITALOPRAM HYDROBROMIDE
     Dosage: 20 MG
  14. METOPROLOL TARTRATE. [Concomitant]
     Active Substance: METOPROLOL TARTRATE
     Dosage: 500 MG
  15. DOCUSATE [Concomitant]
     Active Substance: DOCUSATE
     Dosage: 100 MG
  16. JANUVIA [Concomitant]
     Active Substance: SITAGLIPTIN PHOSPHATE
     Dosage: 25 MG
  17. PANTOPRAZOLE SODIUM. [Concomitant]
     Active Substance: PANTOPRAZOLE SODIUM
     Dosage: 40 MG
  18. ASPIRIN 81 [Concomitant]
     Active Substance: ASPIRIN
  19. DORZOLAMIDE [Concomitant]
     Active Substance: DORZOLAMIDE
     Dosage: ONE DROP IN RIGHT EYE

REACTIONS (1)
  - Deafness [Not Recovered/Not Resolved]

NARRATIVE: CASE EVENT DATE: 2000
